FAERS Safety Report 15752501 (Version 1)
Quarter: 2018Q4

REPORT INFORMATION
  Report Type: Spontaneous
  Country: CN (occurrence: CN)
  Receive Date: 20181221
  Receipt Date: 20181221
  Transmission Date: 20190205
  Serious: Yes (Hospitalization, Other)
  Sender: FDA-Public Use
  Company Number: CN-IMPAX LABORATORIES, LLC-2018-IPXL-04231

PATIENT
  Age: 14 Year
  Sex: Female

DRUGS (1)
  1. ALBENZA [Suspect]
     Active Substance: ALBENDAZOLE
     Indication: NEMATODIASIS
     Dosage: 2 DOSAGE FORM, UNKNOWN FREQUENCY
     Route: 048

REACTIONS (7)
  - Hospitalisation [Unknown]
  - Epilepsy [Unknown]
  - Eye disorder [Unknown]
  - Aphasia [Unknown]
  - Encephalitis [Unknown]
  - Mental impairment [Unknown]
  - Hyperhidrosis [Unknown]
